FAERS Safety Report 13124016 (Version 2)
Quarter: 2017Q1

REPORT INFORMATION
  Report Type: Report from Study
  Country: US (occurrence: US)
  Receive Date: 20170118
  Receipt Date: 20170208
  Transmission Date: 20170428
  Serious: Yes (Hospitalization, Other)
  Sender: FDA-Public Use
  Company Number: US-AMGEN-USASL2017006312

PATIENT
  Age: 70 Year
  Sex: Female
  Weight: 77.55 kg

DRUGS (2)
  1. SIMVASTATIN. [Concomitant]
     Active Substance: SIMVASTATIN
     Indication: TYPE IIA HYPERLIPIDAEMIA
     Dosage: UNK
     Route: 048
     Dates: start: 20161019
  2. REPATHA [Suspect]
     Active Substance: EVOLOCUMAB
     Indication: TYPE IIA HYPERLIPIDAEMIA
     Dosage: 1 ML, Q2WK
     Route: 058
     Dates: start: 20161114

REACTIONS (3)
  - Atrial fibrillation [Unknown]
  - Drug withdrawal syndrome [Unknown]
  - Pneumonia [Unknown]
